FAERS Safety Report 18630945 (Version 1)
Quarter: 2020Q4

REPORT INFORMATION
  Report Type: Spontaneous
  Country: US (occurrence: US)
  Receive Date: 20201218
  Receipt Date: 20201218
  Transmission Date: 20210114
  Serious: No
  Sender: FDA-Public Use
  Company Number: US-SA-2020SA360600

PATIENT

DRUGS (4)
  1. AUBAGIO [Suspect]
     Active Substance: TERIFLUNOMIDE
     Indication: MULTIPLE SCLEROSIS
     Dosage: 14 MG, QD
     Route: 048
     Dates: start: 201910
  2. NORTREL [LEVONORGESTREL] [Concomitant]
     Dosage: 0.5-0.035 TABLET,
  3. GABAPENTIN. [Concomitant]
     Active Substance: GABAPENTIN
     Indication: MIGRAINE
  4. NORTRIPTYLINE [Concomitant]
     Active Substance: NORTRIPTYLINE
     Dosage: UNK

REACTIONS (1)
  - Depression [Recovered/Resolved]
